FAERS Safety Report 12613616 (Version 3)
Quarter: 2016Q4

REPORT INFORMATION
  Report Type: Spontaneous
  Country: US (occurrence: US)
  Receive Date: 20160802
  Receipt Date: 20161128
  Transmission Date: 20170207
  Serious: Yes (Other)
  Sender: FDA-Public Use
  Company Number: US-ASTRAZENECA-2016SE81271

PATIENT
  Sex: Male
  Weight: 120.2 kg

DRUGS (8)
  1. LISINOPRIL. [Suspect]
     Active Substance: LISINOPRIL
     Dosage: 10.0MG UNKNOWN
     Route: 048
  2. WELLBUTRIN [Concomitant]
     Active Substance: BUPROPION HYDROCHLORIDE
     Route: 048
  3. BYDUREON [Suspect]
     Active Substance: EXENATIDE
     Route: 058
     Dates: start: 2016
  4. APIRIN [Concomitant]
     Route: 048
  5. FENOFIBRATE. [Concomitant]
     Active Substance: FENOFIBRATE
     Route: 048
  6. SIMVASTATIN. [Concomitant]
     Active Substance: SIMVASTATIN
     Route: 048
  7. LITHIUM. [Concomitant]
     Active Substance: LITHIUM
     Route: 048
  8. AMBIEN [Concomitant]
     Active Substance: ZOLPIDEM TARTRATE
     Route: 048

REACTIONS (13)
  - Mental disorder [Unknown]
  - Hepatic cyst [Unknown]
  - Flatulence [Unknown]
  - Decreased appetite [Unknown]
  - Heart rate decreased [Unknown]
  - Glycosylated haemoglobin increased [Unknown]
  - Blood pressure systolic decreased [Unknown]
  - Weight increased [Unknown]
  - Product quality issue [Unknown]
  - Blindness [Unknown]
  - Emotional disorder [Unknown]
  - Weight decreased [Unknown]
  - Renal cyst [Unknown]
